FAERS Safety Report 5605737-4 (Version None)
Quarter: 2008Q1

REPORT INFORMATION
  Report Type: 
  Country: None (occurrence: None)
  Receive Date: 20080123
  Receipt Date: 20080107
  Transmission Date: 20080703
  Serious: Yes (Hospitalization)
  Sender: FDA-Public Use
  Company Number: 2008JP000090

PATIENT
  Age: 74 Year
  Sex: Female
  Weight: 48 kg

DRUGS (8)
  1. TACROLIMUS [Suspect]
     Indication: RHEUMATOID ARTHRITIS
     Dosage: 1 MG, D, ORAL
     Route: 048
     Dates: start: 20050825
  2. METHOTREXATE [Concomitant]
  3. FELDENE (PIROXICAM) SUPPOSITORY [Concomitant]
  4. ALFAROL (ALFACALCIDOL) [Concomitant]
  5. NEUROVITAN [Concomitant]
  6. MUCOSTA (REBAMIPIDE) [Concomitant]
  7. OMEPRAL [Concomitant]
  8. NEUER (CETRAXATE HYDROCHLORIDE) [Concomitant]

REACTIONS (1)
  - SPINAL COMPRESSION FRACTURE [None]
